FAERS Safety Report 16473494 (Version 5)
Quarter: 2021Q3

REPORT INFORMATION
  Report Type: Report from Study
  Country: BR (occurrence: BR)
  Receive Date: 20190625
  Receipt Date: 20210708
  Transmission Date: 20211014
  Serious: Yes (Hospitalization)
  Sender: FDA-Public Use
  Company Number: BR-ROCHE-2341164

PATIENT
  Age: 64 Year
  Sex: Male
  Weight: 52.1 kg

DRUGS (28)
  1. PARACETAMOL [Concomitant]
     Active Substance: ACETAMINOPHEN
     Route: 042
     Dates: start: 20190529, end: 20190529
  2. SIMVASTATIN. [Concomitant]
     Active Substance: SIMVASTATIN
     Indication: ACUTE CORONARY SYNDROME
     Route: 048
     Dates: start: 1999
  3. ISOSORBID MONONITRATE [Concomitant]
     Active Substance: ISOSORBIDE MONONITRATE
     Indication: ACUTE CORONARY SYNDROME
     Route: 048
     Dates: start: 20190403
  4. PARACETAMOL [Concomitant]
     Active Substance: ACETAMINOPHEN
     Route: 048
     Dates: start: 20190417, end: 20190911
  5. PREDNISONE. [Concomitant]
     Active Substance: PREDNISONE
     Route: 048
     Dates: start: 20190508, end: 20190508
  6. PREDNISONE. [Suspect]
     Active Substance: PREDNISONE
     Indication: DIFFUSE LARGE B-CELL LYMPHOMA
     Dosage: ON DAYS 1?5 OF EVERY 21?DAY CYCLE FOR 6 CYCLES?DOSE OF LAST PREDNISONE/PREDNISOLONE/ METHYLPREDNISOL
     Route: 048
     Dates: start: 20190417
  7. PREDNISONE. [Concomitant]
     Active Substance: PREDNISONE
     Route: 048
     Dates: start: 20190529, end: 20190529
  8. TRIMEBUTINE [Concomitant]
     Active Substance: TRIMEBUTINE
     Indication: DYSPEPSIA
     Route: 048
     Dates: start: 201806, end: 20191105
  9. PANTOPRAZOLE [Concomitant]
     Active Substance: PANTOPRAZOLE
     Indication: DYSPEPSIA
     Route: 048
     Dates: start: 2017, end: 20200324
  10. SULFAMETHOXAZOLE/TRIMETHOPRIM [Concomitant]
     Active Substance: SULFAMETHOXAZOLE\TRIMETHOPRIM
     Route: 048
     Dates: start: 20190310, end: 20191016
  11. DIPHENHYDRAMINE. [Concomitant]
     Active Substance: DIPHENHYDRAMINE
     Route: 042
     Dates: start: 20190529, end: 20190529
  12. POLATUZUMAB VEDOTIN. [Suspect]
     Active Substance: POLATUZUMAB VEDOTIN
     Indication: DIFFUSE LARGE B-CELL LYMPHOMA
     Dosage: DATE OF MOST RECENT DOSE OF BLINDED POLATUZUMAB VEDOTIN PRIOR TO SAE ONSET 29 MAY 2019: 29 MG
     Route: 042
     Dates: start: 20190418
  13. DOXORUBICIN [Suspect]
     Active Substance: DOXORUBICIN
     Indication: DIFFUSE LARGE B-CELL LYMPHOMA
     Dosage: DOSE OF LAST DOXORUBICIN ADMINISTERED 79.50 MG?DATE OF MOST RECENT DOSE OF DOXORUBICIN PRIOR TO SAE
     Route: 042
     Dates: start: 20190417
  14. ISOSORBID MONONITRATE [Concomitant]
     Active Substance: ISOSORBIDE MONONITRATE
     Route: 048
     Dates: start: 20190403
  15. DIPHENHYDRAMINE. [Concomitant]
     Active Substance: DIPHENHYDRAMINE
     Route: 042
     Dates: start: 20190417, end: 20190911
  16. ACICLOVIR [Concomitant]
     Active Substance: ACYCLOVIR
     Route: 048
     Dates: start: 20190310, end: 20191016
  17. ATENOLOL. [Concomitant]
     Active Substance: ATENOLOL
     Indication: ACUTE CORONARY SYNDROME
     Route: 048
     Dates: start: 20190427, end: 20201207
  18. DIPHENHYDRAMINE. [Concomitant]
     Active Substance: DIPHENHYDRAMINE
     Route: 042
     Dates: start: 20190508, end: 20190508
  19. PLACEBO [Suspect]
     Active Substance: UNSPECIFIED INGREDIENT
     Indication: DIFFUSE LARGE B-CELL LYMPHOMA
     Dosage: DATE OF MOST RECENT DOSE PRIOR TO SAE ONSET 29 MAY 2019
     Route: 042
     Dates: start: 20190417
  20. PARACETAMOL [Concomitant]
     Active Substance: ACETAMINOPHEN
     Route: 048
     Dates: start: 20190508, end: 20190508
  21. FILGRASTIM [Concomitant]
     Active Substance: FILGRASTIM
     Route: 042
     Dates: start: 20190603, end: 20190607
  22. RITUXIMAB. [Suspect]
     Active Substance: RITUXIMAB
     Indication: DIFFUSE LARGE B-CELL LYMPHOMA
     Dosage: DATE OF MOST RECENT DOSE OF RITUXIMAB PRIOR TO SAE ONSET 29 MAY 2019?DOSE LAST STUDY DRUG ADMIN PRIO
     Route: 041
     Dates: start: 20190417
  23. CYCLOPHOSPHAMIDE. [Suspect]
     Active Substance: CYCLOPHOSPHAMIDE
     Indication: DIFFUSE LARGE B-CELL LYMPHOMA
     Dosage: DOSE OF LAST CYCLOPHOSPHAMIDE ADMINISTERED 1192.50 MG?DATE OF MOST RECENT DOSE OF CYCLOPHOSPHAMIDE P
     Route: 042
     Dates: start: 20190417
  24. ALOPURINOL [Concomitant]
     Active Substance: ALLOPURINOL
     Route: 048
     Dates: start: 20190310, end: 20191016
  25. HYDROCHLOROTHIAZIDE. [Concomitant]
     Active Substance: HYDROCHLOROTHIAZIDE
     Indication: ACUTE CORONARY SYNDROME
     Route: 048
     Dates: start: 1999
  26. ACETYLSALICYLIC ACID [Concomitant]
     Active Substance: ASPIRIN
     Indication: ACUTE CORONARY SYNDROME
     Route: 048
     Dates: start: 1999
  27. ONDANSETRON [Concomitant]
     Active Substance: ONDANSETRON
     Route: 048
     Dates: start: 20190417, end: 20190911
  28. FILGRASTIM [Concomitant]
     Active Substance: FILGRASTIM
     Indication: PROPHYLAXIS
     Route: 058
     Dates: start: 20190513, end: 20190517

REACTIONS (1)
  - Constipation [Recovered/Resolved]

NARRATIVE: CASE EVENT DATE: 20190604
